FAERS Safety Report 19640237 (Version 1)
Quarter: 2021Q3

REPORT INFORMATION
  Report Type: Spontaneous
  Country: US (occurrence: US)
  Receive Date: 20210730
  Receipt Date: 20210730
  Transmission Date: 20211014
  Serious: Yes (Other)
  Sender: FDA-Public Use
  Company Number: US-SUN PHARMACEUTICAL INDUSTRIES LTD-2021R1-305930

PATIENT
  Age: 22 Month
  Sex: Female

DRUGS (2)
  1. DEXMEDETOMIDINE. [Suspect]
     Active Substance: DEXMEDETOMIDINE
     Indication: SEROTONIN SYNDROME
     Dosage: 1 MICROGRAM/KILOGRAM
     Route: 065
  2. DEXMEDETOMIDINE. [Suspect]
     Active Substance: DEXMEDETOMIDINE
     Dosage: 0.8 MICROGRAM/KILOGRAM
     Route: 065

REACTIONS (1)
  - Disease recurrence [Unknown]
